FAERS Safety Report 7168357-9 (Version None)
Quarter: 2010Q4

REPORT INFORMATION
  Report Type: 
  Country: None (occurrence: None)
  Receive Date: 20101216
  Receipt Date: 20101214
  Transmission Date: 20110411
  Serious: Yes (Hospitalization)
  Sender: FDA-Public Use
  Company Number: AT-PFIZER INC-2010167634

PATIENT
  Age: 65 Year
  Sex: Male
  Weight: 86 kg

DRUGS (10)
  1. CHANTIX [Suspect]
     Indication: SMOKING CESSATION THERAPY
     Dosage: UNK
     Route: 048
  2. COZAAR [Concomitant]
     Dosage: 50 MG, UNK
  3. COSAAR PLUS [Concomitant]
     Dosage: UNK
  4. SELOKEN [Concomitant]
     Dosage: 95 MG, UNK
  5. MAGNESIUM VERLA [Concomitant]
     Dosage: UNK
  6. PANTOPRAZOLE [Concomitant]
     Dosage: 40 MG, UNK
  7. PLAVIX [Concomitant]
     Dosage: 75 MG, UNK
  8. PSYCHOPAX [Concomitant]
     Dosage: UNK
  9. AMLODIPIN 1 A [Concomitant]
     Dosage: 10 MG, UNK
  10. DANCOR [Concomitant]
     Dosage: 10 MG, UNK

REACTIONS (3)
  - CARDIAC FAILURE [None]
  - HYPERTENSION [None]
  - RESPIRATORY DISTRESS [None]
